FAERS Safety Report 5310970-5 (Version None)
Quarter: 2007Q2

REPORT INFORMATION
  Report Type: 
  Country: None (occurrence: None)
  Receive Date: 20070423
  Receipt Date: 20070411
  Transmission Date: 20071010
  Serious: Yes (Hospitalization)
  Sender: FDA-Public Use
  Company Number: 155225ISR

PATIENT
  Age: 62 Year
  Sex: Female

DRUGS (2)
  1. LACTULOSE [Suspect]
  2. SENNA ALEXANDRINA [Suspect]

REACTIONS (10)
  - ANAEMIA [None]
  - BLOOD POTASSIUM DECREASED [None]
  - CLUBBING [None]
  - COUGH [None]
  - DIARRHOEA [None]
  - DRUG ABUSER [None]
  - DRUG SCREEN POSITIVE [None]
  - INCORRECT DOSE ADMINISTERED [None]
  - MELANOSIS COLI [None]
  - WEIGHT DECREASED [None]
